FAERS Safety Report 7718684-9 (Version None)
Quarter: 2011Q3

REPORT INFORMATION
  Report Type: 
  Country: None (occurrence: None)
  Receive Date: 20110830
  Receipt Date: 20110816
  Transmission Date: 20111222
  Serious: No
  Sender: FDA-Public Use
  Company Number: US-B.I. PHARMACEUTICALS,INC./RIDGEFIELD-2011-BP-18521BP

PATIENT
  Age: 80 Year
  Sex: Female

DRUGS (3)
  1. CARDIZEM CD [Concomitant]
     Dosage: 360 MG
     Route: 048
  2. BENICAR [Concomitant]
     Dosage: 20 MEQ
     Route: 048
  3. PRADAXA [Suspect]
     Indication: ATRIAL FIBRILLATION
     Dosage: 300 MG
     Route: 048
     Dates: start: 20110620

REACTIONS (3)
  - NAUSEA [None]
  - ABDOMINAL DISCOMFORT [None]
  - THROAT TIGHTNESS [None]
